FAERS Safety Report 23494088 (Version 1)
Quarter: 2024Q1

REPORT INFORMATION
  Report Type: Spontaneous
  Country: US (occurrence: US)
  Receive Date: 20240207
  Receipt Date: 20240207
  Transmission Date: 20240409
  Serious: Yes (Other)
  Sender: FDA-Public Use
  Company Number: US-PFIZER INC-PV202400017628

PATIENT

DRUGS (1)
  1. ZARONTIN [Suspect]
     Active Substance: ETHOSUXIMIDE
     Dosage: 250MG 2 IN THE MORNING, 2 AT NIGHT

REACTIONS (4)
  - Weight increased [Unknown]
  - Blood sodium increased [Unknown]
  - Swelling [Unknown]
  - Injury [Unknown]
